FAERS Safety Report 5709478-4 (Version None)
Quarter: 2008Q2

REPORT INFORMATION
  Report Type: 
  Country: None (occurrence: None)
  Receive Date: 20080417
  Receipt Date: 20080417
  Transmission Date: 20081010
  Serious: Yes (Hospitalization)
  Sender: FDA-Public Use
  Company Number: None

PATIENT
  Age: 26 Year
  Sex: Female
  Weight: 64.4108 kg

DRUGS (1)
  1. NUVARING [Suspect]
     Indication: CONTRACEPTION
     Dosage: ETONOGESTREL EE 0.0120/0.015 ONE RING X 3 WEEKS VAGINAL
     Route: 067
     Dates: start: 20060901, end: 20071101

REACTIONS (1)
  - PULMONARY EMBOLISM [None]
